FAERS Safety Report 6991722-7 (Version None)
Quarter: 2010Q3

REPORT INFORMATION
  Report Type: 
  Country: None (occurrence: None)
  Receive Date: 20100915
  Receipt Date: 20100915
  Transmission Date: 20110219
  Serious: Yes (Hospitalization)
  Sender: FDA-Public Use
  Company Number: None

PATIENT
  Age: 36 Month
  Weight: 14.7 kg

DRUGS (1)
  1. METOLAZONE [Suspect]
     Indication: SLEEP DISORDER
     Dosage: 1 HS PRN SLEEP PO
     Route: 048

REACTIONS (2)
  - DEHYDRATION [None]
  - DRUG DISPENSING ERROR [None]
